FAERS Safety Report 25097122 (Version 2)
Quarter: 2025Q1

REPORT INFORMATION
  Report Type: Spontaneous
  Country: KR (occurrence: KR)
  Receive Date: 20250319
  Receipt Date: 20250328
  Transmission Date: 20250409
  Serious: Yes (Other)
  Sender: JOHNSON AND JOHNSON
  Company Number: KR-JNJFOC-20250350091

PATIENT
  Age: 63 Year
  Sex: Female

DRUGS (2)
  1. LAZERTINIB [Suspect]
     Active Substance: LAZERTINIB
     Indication: Non-small cell lung cancer
     Route: 048
     Dates: start: 202312, end: 202405
  2. ERLOTINIB [Concomitant]
     Active Substance: ERLOTINIB
     Dates: start: 202406

REACTIONS (2)
  - Non-small cell lung cancer [Unknown]
  - Neuropathy peripheral [Unknown]
